FAERS Safety Report 11120757 (Version 1)
Quarter: 2015Q2

REPORT INFORMATION
  Report Type: Spontaneous
  Country: US (occurrence: US)
  Receive Date: 20150519
  Receipt Date: 20150519
  Transmission Date: 20150821
  Serious: No
  Sender: FDA-Public Use
  Company Number: US-BAYER-2015-225639

PATIENT
  Age: 63 Year
  Sex: Male
  Weight: 73 kg

DRUGS (5)
  1. GARLIC. [Concomitant]
     Active Substance: GARLIC
  2. VITAMIN C [ASCORBIC ACID] [Concomitant]
  3. COQ10 [Concomitant]
     Active Substance: UBIDECARENONE
  4. CRANBERRY. [Concomitant]
     Active Substance: CRANBERRY
  5. ALEVE [Suspect]
     Active Substance: NAPROXEN SODIUM
     Indication: ANALGESIC THERAPY
     Dosage: 1 DF, PRN
     Route: 048
     Dates: start: 2014, end: 201502

REACTIONS (2)
  - Tinnitus [Not Recovered/Not Resolved]
  - Therapeutic response unexpected [Recovered/Resolved]

NARRATIVE: CASE EVENT DATE: 201410
